FAERS Safety Report 10366233 (Version 3)
Quarter: 2015Q2

REPORT INFORMATION
  Report Type: Spontaneous
  Country: US (occurrence: US)
  Receive Date: 20140806
  Receipt Date: 20150522
  Transmission Date: 20150821
  Serious: Yes (Death, Hospitalization, Other)
  Sender: FDA-Public Use
  Company Number: US-009507513-1408USA001618

PATIENT
  Sex: Female
  Weight: 95.24 kg

DRUGS (2)
  1. JANUVIA [Suspect]
     Active Substance: SITAGLIPTIN PHOSPHATE
     Indication: TYPE 2 DIABETES MELLITUS
     Dosage: 100 MG, QD
     Route: 048
     Dates: start: 20110311, end: 20130826
  2. BYETTA [Suspect]
     Active Substance: EXENATIDE
     Dosage: 5 MICROGRAM, BID
     Route: 048
     Dates: start: 20070223, end: 20090409

REACTIONS (41)
  - Anaemia [Unknown]
  - Candida infection [Unknown]
  - Toxicity to various agents [Unknown]
  - Cough [Unknown]
  - Headache [Unknown]
  - Pancreatic carcinoma metastatic [Fatal]
  - Mammoplasty [Unknown]
  - Lethargy [Unknown]
  - Gastroenteritis [Recovered/Resolved]
  - Major depression [Unknown]
  - Pneumonia [Unknown]
  - Stress [Unknown]
  - Generalised oedema [Unknown]
  - Drug intolerance [Unknown]
  - Blood potassium decreased [Unknown]
  - Cholecystectomy [Unknown]
  - Hyperlipidaemia [Unknown]
  - Diverticulum [Unknown]
  - Muscular weakness [Unknown]
  - Anxiety [Unknown]
  - Hypotension [Unknown]
  - Metastases to liver [Unknown]
  - Ascites [Unknown]
  - Hypoaesthesia [Unknown]
  - Fall [Unknown]
  - Hyperhidrosis [Unknown]
  - Asthma [Unknown]
  - Appendicectomy [Unknown]
  - Haematochezia [Unknown]
  - Peripheral swelling [Unknown]
  - Back pain [Not Recovered/Not Resolved]
  - Sleep apnoea syndrome [Unknown]
  - Candida infection [Recovered/Resolved]
  - Gastritis [Unknown]
  - Central nervous system lesion [Unknown]
  - Fluid retention [Unknown]
  - Hallucination [Recovered/Resolved]
  - Gastrointestinal haemorrhage [Unknown]
  - Metastases to lung [Unknown]
  - Surgery [Unknown]
  - Dysarthria [Unknown]

NARRATIVE: CASE EVENT DATE: 2011
